FAERS Safety Report 10575893 (Version 1)
Quarter: 2014Q4

REPORT INFORMATION
  Report Type: Spontaneous
  Country: US (occurrence: None)
  Receive Date: 20141110
  Receipt Date: 20141110
  Transmission Date: 20150529
  Serious: No
  Sender: FDA-Public Use
  Company Number: None

PATIENT
  Sex: Female

DRUGS (1)
  1. EMEND [Suspect]
     Active Substance: APREPITANT
     Indication: NAUSEA
     Route: 042
     Dates: start: 20140828

REACTIONS (2)
  - Flushing [None]
  - Visual impairment [None]

NARRATIVE: CASE EVENT DATE: 20140828
